FAERS Safety Report 10028727 (Version 1)
Quarter: 2014Q1

REPORT INFORMATION
  Report Type: Report from Study
  Country: CA (occurrence: CA)
  Receive Date: 20140321
  Receipt Date: 20140321
  Transmission Date: 20141002
  Serious: Yes (Other)
  Sender: FDA-Public Use
  Company Number: CA-ABBVIE-14P-028-1213019-00

PATIENT
  Age: 53 Year
  Sex: Male
  Weight: 78 kg

DRUGS (1)
  1. KALETRA 200/50 [Suspect]
     Indication: ANTIRETROVIRAL THERAPY
     Dosage: 200 MG/50MG 2 TABLETS TWICE A DAY (TOTAL DAILY DOSE 800/200MG)
     Route: 048
     Dates: start: 2004

REACTIONS (1)
  - Oesophageal cancer metastatic [Unknown]
